FAERS Safety Report 25979192 (Version 1)
Quarter: 2025Q4

REPORT INFORMATION
  Report Type: Spontaneous
  Country: EU (occurrence: EU)
  Receive Date: 20251030
  Receipt Date: 20251030
  Transmission Date: 20260119
  Serious: Yes (Life-Threatening, Hospitalization, Other)
  Sender: BAXTER
  Company Number: None

PATIENT
  Age: 56 Year
  Sex: Female

DRUGS (3)
  1. DOXORUBICIN HYDROCHLORIDE [Suspect]
     Active Substance: DOXORUBICIN HYDROCHLORIDE
     Indication: Breast cancer
     Dosage: 60 MG/M2, EVERY 3 WK (EVERY 21 DAYS) 1 VIAL OF 10 ML
     Route: 065
     Dates: start: 20250729, end: 20250819
  2. KEYTRUDA [Suspect]
     Active Substance: PEMBROLIZUMAB
     Indication: Breast cancer
     Dosage: 2 MG/KG, EVERY 3 WK (EVERY 21 DAYS) 1 VIAL OF 4 ML
     Route: 042
     Dates: start: 20250429, end: 20250819
  3. CYCLOPHOSPHAMIDE [Suspect]
     Active Substance: CYCLOPHOSPHAMIDE
     Indication: Breast cancer
     Dosage: 600 MG/M2, EVERY 3 WK (EVERY 21 DAYS) 1 VIAL OF 10 ML
     Route: 042
     Dates: start: 20250729, end: 20250819

REACTIONS (2)
  - Agranulocytosis [Recovered/Resolved]
  - Immune-mediated dermatitis [Recovering/Resolving]

NARRATIVE: CASE EVENT DATE: 20250828
